FAERS Safety Report 16301588 (Version 2)
Quarter: 2019Q2

REPORT INFORMATION
  Report Type: Spontaneous
  Country: FR (occurrence: FR)
  Receive Date: 20190511
  Receipt Date: 20190514
  Transmission Date: 20190711
  Serious: Yes (Hospitalization)
  Sender: FDA-Public Use
  Company Number: FR-TEVA-2019-FR-1047682

PATIENT
  Age: 55 Year
  Sex: Male
  Weight: 86 kg

DRUGS (7)
  1. ATORVASTATINE [Suspect]
     Active Substance: ATORVASTATIN
     Indication: PROPHYLAXIS
     Route: 048
     Dates: start: 20181215
  2. OMEPRAZOLE. [Suspect]
     Active Substance: OMEPRAZOLE
     Indication: PRODUCT USED FOR UNKNOWN INDICATION
     Route: 048
     Dates: start: 20181215
  3. NATISPRAY 0,15 MG/DOSE, SOLUTION POUR PULVERISATION BUCCALE [Suspect]
     Active Substance: NITROGLYCERIN
     Indication: ANGINA PECTORIS
     Route: 055
     Dates: start: 20181215
  4. KARDEGIC [Suspect]
     Active Substance: ASPIRIN DL-LYSINE
     Indication: PROPHYLAXIS
     Route: 048
     Dates: start: 20181215
  5. TRINITRINE [Suspect]
     Active Substance: NITROGLYCERIN
     Indication: ANGINA PECTORIS
     Route: 062
     Dates: start: 20181215
  6. BRILIQUE 90 MG, COMPRIME ORODISPERSIBLE [Suspect]
     Active Substance: TICAGRELOR
     Indication: PROPHYLAXIS
     Route: 048
     Dates: start: 20181215
  7. BISOCE 2,5 MG, COMPRIME PELLICULE SECABLE [Suspect]
     Active Substance: BISOPROLOL FUMARATE
     Indication: PROPHYLAXIS
     Route: 048
     Dates: start: 20181215

REACTIONS (2)
  - Pruritus [Recovering/Resolving]
  - Vascular purpura [Recovering/Resolving]

NARRATIVE: CASE EVENT DATE: 20190309
